FAERS Safety Report 6051777-3 (Version None)
Quarter: 2009Q1

REPORT INFORMATION
  Report Type: 
  Country: None (occurrence: None)
  Receive Date: 20090126
  Receipt Date: 20090119
  Transmission Date: 20090719
  Serious: Yes (Hospitalization)
  Sender: FDA-Public Use
  Company Number: FR-PFIZER INC-2009158863

PATIENT
  Sex: Male

DRUGS (15)
  1. ATORVASTATIN CALCIUM [Suspect]
     Route: 048
     Dates: start: 20081127, end: 20081208
  2. CARDENSIEL [Suspect]
     Dosage: 1.25 MG, 1X/DAY
     Dates: start: 20081204, end: 20081208
  3. TRAMADOL HYDROCHLORIDE [Suspect]
     Indication: PAIN
     Route: 048
     Dates: start: 20081130, end: 20081209
  4. KARDEGIC [Suspect]
     Route: 048
     Dates: start: 20081127
  5. TRINITRINE [Suspect]
     Dates: start: 20081127
  6. LOVENOX [Suspect]
     Dosage: 0.4 MG, 1X/DAY
     Route: 058
     Dates: start: 20081126
  7. CLOPIDOGREL HYDROGENOSULFATE [Concomitant]
  8. RAMIPRIL [Concomitant]
  9. AMLODIPINE BESILATE [Concomitant]
  10. ESOMEPRAZOLE MAGNESIUM [Concomitant]
  11. FUROSEMIDE [Concomitant]
     Dates: end: 20081202
  12. SPIRIVA [Suspect]
  13. SYMBICORT [Concomitant]
  14. SECTRAL [Concomitant]
     Dates: end: 20081204
  15. SIMVASTATIN [Concomitant]
     Dates: end: 20081127

REACTIONS (1)
  - CYTOLYTIC HEPATITIS [None]
